FAERS Safety Report 5339513-7 (Version None)
Quarter: 2007Q2

REPORT INFORMATION
  Report Type: 
  Country: None (occurrence: None)
  Receive Date: 20070518
  Receipt Date: 20070503
  Transmission Date: 20071010
  Serious: Yes (Hospitalization)
  Sender: FDA-Public Use
  Company Number: B0470474A

PATIENT
  Age: 53 Year
  Sex: Male

DRUGS (5)
  1. EPIVIR [Suspect]
     Indication: HIV INFECTION
     Dates: start: 20050101
  2. NEVIRAPINE [Suspect]
     Indication: HIV INFECTION
     Dates: start: 20050101
  3. STAVUDINE [Suspect]
     Indication: HIV INFECTION
     Dates: start: 20050101
  4. LOPINAVIR + RITONAVIR [Concomitant]
  5. TENOFOVIR [Concomitant]

REACTIONS (6)
  - ATYPICAL MYCOBACTERIAL INFECTION [None]
  - CACHEXIA [None]
  - DISEASE RECURRENCE [None]
  - LYMPHADENOPATHY [None]
  - OPPORTUNISTIC INFECTION [None]
  - TUBERCULOSIS [None]
